FAERS Safety Report 24121275 (Version 1)
Quarter: 2024Q3

REPORT INFORMATION
  Report Type: Spontaneous
  Country: US (occurrence: None)
  Receive Date: 20240722
  Receipt Date: 20240722
  Transmission Date: 20241016
  Serious: No
  Sender: ASTRAZENECA
  Company Number: 2024A148399

PATIENT

DRUGS (1)
  1. FASENRA [Suspect]
     Active Substance: BENRALIZUMAB
     Route: 058

REACTIONS (9)
  - Maternal exposure during pregnancy [Unknown]
  - Asthma [Unknown]
  - Therapeutic response shortened [Unknown]
  - Product distribution issue [Unknown]
  - Inappropriate schedule of product administration [Unknown]
  - Eczema [Unknown]
  - Allergy to animal [Unknown]
  - Mycotic allergy [Unknown]
  - Dairy intolerance [Unknown]
